FAERS Safety Report 20529537 (Version 1)
Quarter: 2022Q1

REPORT INFORMATION
  Report Type: Report from Study
  Country: CN (occurrence: CN)
  Receive Date: 20220301
  Receipt Date: 20220301
  Transmission Date: 20220423
  Serious: Yes (Other)
  Sender: FDA-Public Use
  Company Number: CN-NOVARTISPH-NVSC2020CN200769

PATIENT
  Age: 80 Year
  Sex: Male

DRUGS (10)
  1. ENTRESTO [Suspect]
     Active Substance: SACUBITRIL\VALSARTAN
     Indication: Cardiac failure chronic
     Dosage: 0.5 DF, (24 MG SACUBITRIL/26 MG VALSARTAN)
     Route: 048
     Dates: start: 20200410, end: 20200419
  2. METOPROLOL [Concomitant]
     Active Substance: METOPROLOL
     Indication: Cardiac failure
     Dosage: 23.75 MG
     Route: 048
     Dates: start: 20200518, end: 20200519
  3. TRIMETAZIDINE DIHYDROCHLORIDE [Concomitant]
     Active Substance: TRIMETAZIDINE DIHYDROCHLORIDE
     Indication: Cardiac failure
     Dosage: 35 MG
     Route: 048
     Dates: start: 20200518, end: 20200519
  4. FLUVASTATIN [Concomitant]
     Active Substance: FLUVASTATIN SODIUM
     Indication: Lipids abnormal
     Dosage: 80 MG
     Route: 048
     Dates: start: 20200407, end: 20200517
  5. BISOPROLOL [Concomitant]
     Active Substance: BISOPROLOL
     Indication: Cardiac failure
     Dosage: 2.5 MG
     Route: 048
     Dates: start: 20200407, end: 20200420
  6. CLOPIDOGREL BISULFATE [Concomitant]
     Active Substance: CLOPIDOGREL BISULFATE
     Indication: Antiplatelet therapy
     Dosage: 75 MG
     Route: 048
     Dates: start: 20200408, end: 20200420
  7. AMBROXOL HYDROCHLORIDE [Concomitant]
     Active Substance: AMBROXOL HYDROCHLORIDE
     Indication: Productive cough
     Dosage: 30 MG
     Route: 048
     Dates: start: 20200408, end: 20200420
  8. ATORVASTATIN CALCIUM [Concomitant]
     Active Substance: ATORVASTATIN CALCIUM
     Indication: Lipids abnormal
     Dosage: 10 MG
     Route: 048
     Dates: start: 20200518, end: 20200523
  9. FUROSEMIDE [Concomitant]
     Active Substance: FUROSEMIDE
     Indication: Polyuria
     Dosage: 20 MG
     Route: 048
     Dates: start: 20200414, end: 20200519
  10. INSULIN NOS [Concomitant]
     Active Substance: INSULIN NOS
     Indication: Blood glucose increased
     Dosage: 10 IU
     Route: 042
     Dates: start: 20200519, end: 20200519

REACTIONS (2)
  - Acute kidney injury [Not Recovered/Not Resolved]
  - Wrong technique in product usage process [Recovered/Resolved]

NARRATIVE: CASE EVENT DATE: 20200410
